FAERS Safety Report 4956141-3 (Version None)
Quarter: 2006Q1

REPORT INFORMATION
  Report Type: 
  Country: None (occurrence: None)
  Receive Date: 20060201
  Receipt Date: 20051103
  Transmission Date: 20060701
  Serious: No
  Sender: FDA-Public Use
  Company Number: 2005PV004374

PATIENT
  Age: 58 Year
  Sex: Female
  Weight: 90.7194 kg

DRUGS (7)
  1. BYETTA [Suspect]
     Indication: DIABETES MELLITUS NON-INSULIN-DEPENDENT
     Dosage: 5 MCG;BID;SC
     Route: 058
     Dates: start: 20051101
  2. LANTUS [Concomitant]
  3. GLUCOTROL [Concomitant]
  4. AVANDIA [Concomitant]
  5. ALDACTONE [Concomitant]
  6. ZESTRIL [Concomitant]
  7. TENORMIN [Concomitant]

REACTIONS (5)
  - BLOOD GLUCOSE INCREASED [None]
  - BLOOD PRESSURE INCREASED [None]
  - DYSPEPSIA [None]
  - HEART RATE INCREASED [None]
  - TINNITUS [None]
